FAERS Safety Report 9942565 (Version 1)
Quarter: 2014Q1

REPORT INFORMATION
  Report Type: Report from Study
  Country: US (occurrence: US)
  Receive Date: 20140303
  Receipt Date: 20140303
  Transmission Date: 20141002
  Serious: No
  Sender: FDA-Public Use
  Company Number: US-ABBVIE-13P-163-1045002-00

PATIENT
  Age: 76 Year
  Sex: Male

DRUGS (9)
  1. HUMIRA [Suspect]
     Indication: RHEUMATOID ARTHRITIS
     Dates: start: 20130201
  2. PLAVIX [Concomitant]
     Indication: ANTICOAGULANT THERAPY
     Dosage: DAILY
  3. ASA [Concomitant]
     Indication: ANTICOAGULANT THERAPY
     Dosage: DAILY
  4. ISORBIDE [Concomitant]
     Indication: CARDIAC DISORDER
     Dosage: DAILY
  5. TRILIPIX [Concomitant]
     Indication: BLOOD CHOLESTEROL
     Dosage: DAILY
  6. PRAVASTATIN [Concomitant]
     Indication: CARDIAC DISORDER
     Dosage: DAILY
  7. RANEXA [Concomitant]
     Indication: CARDIAC DISORDER
  8. PROPANOLOL [Concomitant]
     Indication: HYPERTENSION
     Dosage: DAILY
  9. FUROSEMIDE [Concomitant]
     Indication: HYPERTENSION
     Dosage: DAILY

REACTIONS (1)
  - Injection site haemorrhage [Recovered/Resolved]
